FAERS Safety Report 9793150 (Version 1)
Quarter: 2014Q1

REPORT INFORMATION
  Report Type: Spontaneous
  Country: US (occurrence: US)
  Receive Date: 20140102
  Receipt Date: 20140102
  Transmission Date: 20141002
  Serious: No
  Sender: FDA-Public Use
  Company Number: US-BAYER-2013-159516

PATIENT
  Age: 65 Year
  Sex: Female
  Weight: 108 kg

DRUGS (1)
  1. ALEVE SMOOTH GELS [Suspect]
     Indication: ARTHRITIS
     Dosage: 1 DF, PRN
     Route: 048
     Dates: start: 201311

REACTIONS (3)
  - Abdominal discomfort [Recovered/Resolved]
  - Nausea [Recovered/Resolved]
  - Abdominal pain upper [Recovered/Resolved]
